FAERS Safety Report 23060471 (Version 2)
Quarter: 2023Q4

REPORT INFORMATION
  Report Type: Spontaneous
  Country: PT (occurrence: PT)
  Receive Date: 20231012
  Receipt Date: 20231122
  Transmission Date: 20240109
  Serious: Yes (Hospitalization, Other)
  Sender: FDA-Public Use
  Company Number: PT-TEVA-2023-PT-2932686

PATIENT
  Age: 62 Year
  Sex: Male

DRUGS (3)
  1. FLUOROURACIL [Interacting]
     Active Substance: FLUOROURACIL
     Indication: Adenocarcinoma gastric
     Route: 065
  2. FLUOROURACIL [Interacting]
     Active Substance: FLUOROURACIL
     Indication: Metastases to peritoneum
  3. BRIVUDINE [Interacting]
     Active Substance: BRIVUDINE
     Indication: Herpes zoster
     Route: 065

REACTIONS (5)
  - Mucosal inflammation [Recovered/Resolved]
  - Rash [Recovered/Resolved]
  - Alopecia [Recovered/Resolved]
  - Drug interaction [Unknown]
  - Neutropenia [Recovering/Resolving]
